FAERS Safety Report 20997382 (Version 2)
Quarter: 2022Q3

REPORT INFORMATION
  Report Type: Spontaneous
  Country: US (occurrence: US)
  Receive Date: 20220623
  Receipt Date: 20220726
  Transmission Date: 20221027
  Serious: Yes (Other)
  Sender: FDA-Public Use
  Company Number: US-MLMSERVICE-20220608-3602698-1

PATIENT
  Sex: Female

DRUGS (4)
  1. VERAPAMIL HYDROCHLORIDE [Suspect]
     Active Substance: VERAPAMIL HYDROCHLORIDE
     Indication: Cluster headache
     Dosage: UNK (INCREASE IN VERAPAMIL DOSE)
     Route: 065
     Dates: start: 2013, end: 201308
  2. VERAPAMIL HYDROCHLORIDE [Suspect]
     Active Substance: VERAPAMIL HYDROCHLORIDE
     Dosage: UNK (INCREASE IN VERAPAMIL DOSE)
     Route: 065
     Dates: start: 201301, end: 2013
  3. LAMOTRIGINE [Concomitant]
     Active Substance: LAMOTRIGINE
     Indication: Cluster headache
     Dosage: UNK
     Route: 065
     Dates: start: 201301
  4. LITHIUM [Concomitant]
     Active Substance: LITHIUM
     Indication: Neuropsychiatric symptoms
     Dosage: UNK
     Route: 065
     Dates: start: 2013

REACTIONS (3)
  - Atrioventricular block second degree [Unknown]
  - Cardiotoxicity [Unknown]
  - Bradycardia [Unknown]

NARRATIVE: CASE EVENT DATE: 20130801
